FAERS Safety Report 23669700 (Version 2)
Quarter: 2024Q2

REPORT INFORMATION
  Report Type: Spontaneous
  Country: US (occurrence: US)
  Receive Date: 20240325
  Receipt Date: 20240515
  Transmission Date: 20240716
  Serious: Yes (Other)
  Sender: FDA-Public Use
  Company Number: US-PFIZER INC-PV202400038738

PATIENT
  Age: 43 Year
  Sex: Male
  Weight: 93.44 kg

DRUGS (2)
  1. RITUXIMAB [Suspect]
     Active Substance: RITUXIMAB
     Dosage: 250MG IV Q6M
     Route: 042
     Dates: start: 202303, end: 202309
  2. EFFEXOR [Concomitant]
     Active Substance: VENLAFAXINE HYDROCHLORIDE
     Dosage: 150MG PO (PER ORAL) QD (ONCE A DAY)
     Route: 048

REACTIONS (1)
  - Relapsing multiple sclerosis [Not Recovered/Not Resolved]
